FAERS Safety Report 25573553 (Version 1)
Quarter: 2025Q3

REPORT INFORMATION
  Report Type: Spontaneous
  Country: PR (occurrence: None)
  Receive Date: 20250716
  Receipt Date: 20250716
  Transmission Date: 20251021
  Serious: No
  Sender: FDA-CTU
  Company Number: None

PATIENT
  Age: 28 Year
  Sex: Male
  Weight: 76.5 kg

DRUGS (7)
  1. CORTICOTROPIN [Suspect]
     Active Substance: CORTICOTROPIN
     Dosage: TWICE A DAY SUBCUTANEOUS ?
     Route: 058
  2. Methotrexate Sodium Injection Solut [Concomitant]
  3. TYLENOL EXTRA STRENGTH [Concomitant]
     Active Substance: ACETAMINOPHEN
  4. Folic Acid Oral Tablet 1 MG [Concomitant]
  5. Magnesium Oxide Oral Tablet 400 MG [Concomitant]
  6. Calcium with D3 Oral Tablet [Concomitant]
  7. Diclofenac Sodium Oral T [Concomitant]

REACTIONS (2)
  - Sciatica [None]
  - Groin pain [None]

NARRATIVE: CASE EVENT DATE: 20250707
